FAERS Safety Report 5999694-9 (Version None)
Quarter: 2008Q4

REPORT INFORMATION
  Report Type: 
  Country: None (occurrence: None)
  Receive Date: 20081215
  Receipt Date: 20081204
  Transmission Date: 20090506
  Serious: Yes (Death)
  Sender: FDA-Public Use
  Company Number: FR-AMGEN-UK314290

PATIENT
  Sex: Male
  Weight: 60 kg

DRUGS (2)
  1. ROMIPLOSTIM [Suspect]
     Indication: IDIOPATHIC THROMBOCYTOPENIC PURPURA
     Route: 058
     Dates: start: 20080825, end: 20080902
  2. ROMIPLOSTIM [Suspect]
     Route: 058
     Dates: start: 20080925

REACTIONS (1)
  - SUDDEN DEATH [None]
